FAERS Safety Report 17019506 (Version 4)
Quarter: 2021Q4

REPORT INFORMATION
  Report Type: Other
  Country: US (occurrence: None)
  Receive Date: 20191112
  Receipt Date: 20211206
  Transmission Date: 20220304
  Serious: Yes (Hospitalization, Other)
  Sender: FDA-Public Use
  Company Number: US-ROCHE-2377076

PATIENT
  Sex: Female
  Weight: 58.112 kg

DRUGS (43)
  1. OCREVUS [Suspect]
     Active Substance: OCRELIZUMAB
     Indication: Primary progressive multiple sclerosis
     Dosage: UNKNOWN DOSE SCHEDULE ;ONGOING: YES
     Route: 042
     Dates: start: 20190627
  2. OCREVUS [Suspect]
     Active Substance: OCRELIZUMAB
     Dosage: ONGOING : NO
     Route: 041
     Dates: start: 201906, end: 20201202
  3. KLONOPIN [Suspect]
     Active Substance: CLONAZEPAM
     Indication: Bladder spasm
     Dosage: ONGOING: YES
     Route: 048
     Dates: start: 199403
  4. KLONOPIN [Suspect]
     Active Substance: CLONAZEPAM
     Indication: Muscle spasms
     Dosage: ONGOING: NO
     Route: 048
     Dates: start: 2018
  5. KLONOPIN [Suspect]
     Active Substance: CLONAZEPAM
     Dosage: ONGOING
     Route: 048
  6. ADDERALL [Concomitant]
     Active Substance: AMPHETAMINE ASPARTATE\AMPHETAMINE SULFATE\DEXTROAMPHETAMINE SACCHARATE\DEXTROAMPHETAMINE SULFATE
     Indication: Fatigue
     Route: 048
     Dates: start: 201905
  7. ESTRADIOL [Concomitant]
     Active Substance: ESTRADIOL
     Indication: Menopause
     Route: 048
  8. ESTRADIOL [Concomitant]
     Active Substance: ESTRADIOL
     Indication: Bladder spasm
  9. AMLODIPINE [Concomitant]
     Active Substance: AMLODIPINE BESYLATE
     Indication: Hypertension
     Route: 048
  10. NITROFURANTOIN [Concomitant]
     Active Substance: NITROFURANTOIN
     Dates: start: 1999
  11. VENLAFAXINE [Concomitant]
     Active Substance: VENLAFAXINE HYDROCHLORIDE
     Route: 048
  12. VESICARE [Concomitant]
     Active Substance: SOLIFENACIN SUCCINATE
     Indication: Bladder spasm
     Route: 048
  13. GLYCERIN [Concomitant]
     Active Substance: GLYCERIN
     Indication: Constipation
     Route: 054
  14. TYLENOL EXTRA STRENGTH [Concomitant]
     Active Substance: ACETAMINOPHEN
     Indication: Arthritis
     Dosage: UNKNOWN DOSE AND SCHEDULE TAKEN AS NEEDED ;ONGOING: YES
     Dates: start: 2014
  15. TYLENOL EXTRA STRENGTH [Concomitant]
     Active Substance: ACETAMINOPHEN
     Indication: Back pain
  16. IBUPROFEN [Concomitant]
     Active Substance: IBUPROFEN
     Indication: Arthritis
     Dosage: UNKNOWN DOSE TAKEN AS NEEDED ;ONGOING: YES
     Dates: start: 2014
  17. IBUPROFEN [Concomitant]
     Active Substance: IBUPROFEN
     Indication: Back pain
  18. NEURONTIN [Concomitant]
     Active Substance: GABAPENTIN
     Indication: Pain
     Dosage: UNKNOWN DOSE, SCHEDULE ;ONGOING: YES
     Route: 048
     Dates: start: 2005
  19. BENADRYL [Concomitant]
     Active Substance: DIPHENHYDRAMINE HYDROCHLORIDE
     Indication: Premedication
     Route: 048
     Dates: start: 20190627
  20. BENADRYL [Concomitant]
     Active Substance: DIPHENHYDRAMINE HYDROCHLORIDE
     Dosage: UNKNOWN DOSE FOR ALLERGIES, HEADACHE AND SLEEP ;ONGOING: YES
     Route: 048
  21. TYLENOL [Concomitant]
     Active Substance: ACETAMINOPHEN
     Indication: Premedication
  22. SOLU-MEDROL [Concomitant]
     Active Substance: METHYLPREDNISOLONE SODIUM SUCCINATE
     Indication: Visual impairment
     Dosage: ON MONTHLY TAPER 100 MG PER MONTH ;ONGOING: NO
     Dates: start: 201811, end: 20190806
  23. SOLU-MEDROL [Concomitant]
     Active Substance: METHYLPREDNISOLONE SODIUM SUCCINATE
     Dates: start: 1999, end: 201811
  24. SOLU-MEDROL [Concomitant]
     Active Substance: METHYLPREDNISOLONE SODIUM SUCCINATE
     Dosage: GIVEN AS PRE-MEDICATION BEFORE OCREVUS ;ONGOING: YES
     Dates: start: 20190627
  25. RITALIN [Concomitant]
     Active Substance: METHYLPHENIDATE HYDROCHLORIDE
     Indication: Fatigue
     Route: 048
     Dates: start: 201903, end: 201906
  26. AMPYRA [Concomitant]
     Active Substance: DALFAMPRIDINE
     Indication: Primary progressive multiple sclerosis
     Dosage: SWITCHED TO GENERIC IN 2018 ;ONGOING: YES
     Route: 048
     Dates: start: 2011
  27. AMPYRA [Concomitant]
     Active Substance: DALFAMPRIDINE
  28. BACLOFEN [Concomitant]
     Active Substance: BACLOFEN
     Indication: Multiple sclerosis
     Route: 048
     Dates: start: 1994
  29. BACLOFEN [Concomitant]
     Active Substance: BACLOFEN
     Dates: start: 1994
  30. AMPHETAMINE SULFATE [Concomitant]
     Active Substance: AMPHETAMINE SULFATE
  31. AMFETAMINE ASPARTATE [Concomitant]
  32. DEXTROAMPHETAMINE SACCHARATE [Concomitant]
     Active Substance: DEXTROAMPHETAMINE SACCHARATE
  33. DEXTROAMPHETAMINE SULFATE [Concomitant]
     Active Substance: DEXTROAMPHETAMINE SULFATE
  34. ESTRADIOL [Concomitant]
     Active Substance: ESTRADIOL
  35. SOLIFENACIN SUCCINATE [Concomitant]
     Active Substance: SOLIFENACIN SUCCINATE
  36. GLYCERIN [Concomitant]
     Active Substance: GLYCERIN
  37. ACETAMINOPHEN [Concomitant]
     Active Substance: ACETAMINOPHEN
  38. GABAPENTIN [Concomitant]
     Active Substance: GABAPENTIN
  39. DIPHENHYDRAMINE HYDROCHLORIDE [Concomitant]
     Active Substance: DIPHENHYDRAMINE HYDROCHLORIDE
  40. METHYLPREDNISOLONE SODIUM SUCCINATE [Concomitant]
     Active Substance: METHYLPREDNISOLONE SODIUM SUCCINATE
  41. METHYLPHENIDATE HYDROCHLORIDE [Concomitant]
     Active Substance: METHYLPHENIDATE HYDROCHLORIDE
  42. DALFAMPRIDINE [Concomitant]
     Active Substance: DALFAMPRIDINE
  43. BACLOFEN [Concomitant]
     Active Substance: BACLOFEN

REACTIONS (24)
  - Cystitis [Recovered/Resolved]
  - Visual impairment [Recovered/Resolved with Sequelae]
  - Primary progressive multiple sclerosis [Recovering/Resolving]
  - Eye movement disorder [Recovering/Resolving]
  - Bladder spasm [Recovered/Resolved]
  - Influenza like illness [Not Recovered/Not Resolved]
  - Joint injury [Recovered/Resolved]
  - Diplopia [Not Recovered/Not Resolved]
  - Osteoarthritis [Not Recovered/Not Resolved]
  - Cataract [Recovered/Resolved]
  - Drug resistance [Unknown]
  - Spondylitis [Not Recovered/Not Resolved]
  - Eye pain [Recovered/Resolved]
  - Weight decreased [Not Recovered/Not Resolved]
  - Limb discomfort [Unknown]
  - Drug ineffective [Unknown]
  - Condition aggravated [Unknown]
  - Peripheral swelling [Recovered/Resolved]
  - Skin induration [Not Recovered/Not Resolved]
  - Nystagmus [Not Recovered/Not Resolved]
  - Colour blindness [Not Recovered/Not Resolved]
  - Gait disturbance [Unknown]
  - Discomfort [Not Recovered/Not Resolved]
  - Dyskinesia [Unknown]

NARRATIVE: CASE EVENT DATE: 19990101
